FAERS Safety Report 13480796 (Version 2)
Quarter: 2017Q2

REPORT INFORMATION
  Report Type: Spontaneous
  Country: JP (occurrence: JP)
  Receive Date: 20170425
  Receipt Date: 20170519
  Transmission Date: 20170830
  Serious: Yes (Life-Threatening)
  Sender: FDA-Public Use
  Company Number: JP-JNJFOC-20170423116

PATIENT
  Age: 48 Year
  Sex: Female
  Weight: 37 kg

DRUGS (15)
  1. CLARITHROMYCIN. [Concomitant]
     Active Substance: CLARITHROMYCIN
     Route: 050
  2. RISPERDAL [Suspect]
     Active Substance: RISPERIDONE
     Indication: HUNTINGTON^S DISEASE
     Route: 050
     Dates: start: 20161107
  3. SEROQUEL [Suspect]
     Active Substance: QUETIAPINE FUMARATE
     Indication: HUNTINGTON^S DISEASE
     Route: 050
     Dates: start: 20161107
  4. APOPLON [Concomitant]
     Indication: URINARY RETENTION
     Route: 050
  5. FAMOTIDINE. [Concomitant]
     Active Substance: FAMOTIDINE
     Route: 050
  6. DIAZEPAM. [Concomitant]
     Active Substance: DIAZEPAM
     Route: 050
  7. PANTETHINE [Concomitant]
     Active Substance: PANTETHINE
     Route: 050
  8. AMITIZA [Concomitant]
     Active Substance: LUBIPROSTONE
     Route: 050
  9. RISPERDAL [Suspect]
     Active Substance: RISPERIDONE
     Indication: HUNTINGTON^S DISEASE
     Route: 050
     Dates: start: 20111013, end: 20161106
  10. GASLON [Concomitant]
     Active Substance: IRSOGLADINE MALEATE
     Route: 050
  11. NAUZELIN [Concomitant]
     Active Substance: DOMPERIDONE
     Route: 050
  12. GASCON [Concomitant]
     Active Substance: DIMETHICONE
     Route: 065
  13. GASMOTIN [Concomitant]
     Active Substance: MOSAPRIDE CITRATE
     Route: 050
  14. SEROQUEL [Suspect]
     Active Substance: QUETIAPINE FUMARATE
     Indication: HUNTINGTON^S DISEASE
     Route: 050
     Dates: start: 20111013, end: 20161106
  15. MAGMITT [Concomitant]
     Active Substance: MAGNESIUM OXIDE
     Route: 050

REACTIONS (4)
  - Product use in unapproved indication [Unknown]
  - Off label use [Unknown]
  - Neuroleptic malignant syndrome [Recovered/Resolved]
  - Disseminated intravascular coagulation [Recovered/Resolved]

NARRATIVE: CASE EVENT DATE: 20111013
